FAERS Safety Report 19132941 (Version 1)
Quarter: 2021Q2

REPORT INFORMATION
  Report Type: Spontaneous
  Country: DE (occurrence: DE)
  Receive Date: 20210413
  Receipt Date: 20210413
  Transmission Date: 20210717
  Serious: Yes (Other)
  Sender: FDA-Public Use
  Company Number: DE-EXELTIS PHARMACEUTICAL HOLDING, S.L.-2103DE00371

PATIENT
  Age: 53 Year
  Sex: Female

DRUGS (1)
  1. FAMENITA [Suspect]
     Active Substance: PROGESTERONE
     Indication: MENOPAUSAL SYMPTOMS
     Dosage: 200 MILLIGRAM, QD, IN THE EVENING
     Route: 048
     Dates: start: 20210330, end: 2021

REACTIONS (2)
  - Sensory disturbance [Unknown]
  - Feeling drunk [Unknown]

NARRATIVE: CASE EVENT DATE: 20210330
